FAERS Safety Report 7812558-0 (Version None)
Quarter: 2011Q4

REPORT INFORMATION
  Report Type: 
  Country: None (occurrence: None)
  Receive Date: 20111011
  Receipt Date: 20110929
  Transmission Date: 20120403
  Serious: Yes (Other)
  Sender: FDA-Public Use
  Company Number: WAES 1103USA02377

PATIENT
  Age: 74 Year
  Sex: Male

DRUGS (12)
  1. CALCIMAGON [Concomitant]
  2. ALLOPURINOL [Concomitant]
  3. LISINOPRIL [Concomitant]
  4. PREDNISOLONE [Concomitant]
  5. PLACEBO [Suspect]
     Indication: ACUTE CORONARY SYNDROME
     Route: 048
     Dates: start: 20070312
  6. BISOPROLOL [Concomitant]
  7. HYDROCHLOROTHIAZIDE [Concomitant]
  8. NITROGLYCERIN [Concomitant]
  9. VYTORIN [Suspect]
     Indication: ACUTE CORONARY SYNDROME
     Dosage: 10-40 MG/DAILY
     Route: 048
     Dates: start: 20070312
  10. ASPIRIN [Concomitant]
  11. GLUCOPHAGE [Concomitant]
  12. TORSEMIDE [Concomitant]

REACTIONS (1)
  - PROSTATE CANCER [None]
